FAERS Safety Report 6601872-2 (Version None)
Quarter: 2010Q1

REPORT INFORMATION
  Report Type: 
  Country: None (occurrence: None)
  Receive Date: 20100225
  Receipt Date: 20100216
  Transmission Date: 20100710
  Serious: Yes (Hospitalization)
  Sender: FDA-Public Use
  Company Number: JP-ASTRAZENECA-2010SE05782

PATIENT
  Sex: Male
  Weight: 58 kg

DRUGS (3)
  1. BLOPRESS [Suspect]
     Indication: HYPERTENSION
     Route: 048
  2. VOLTAREN SUPPO [Suspect]
     Route: 054
     Dates: start: 20100118, end: 20100128
  3. CALBLOCK [Concomitant]
     Indication: HYPERTENSION
     Route: 048

REACTIONS (2)
  - LIVER DISORDER [None]
  - MALAISE [None]
